FAERS Safety Report 6124427-5 (Version None)
Quarter: 2009Q1

REPORT INFORMATION
  Report Type: 
  Country: None (occurrence: None)
  Receive Date: 20090319
  Receipt Date: 20080809
  Transmission Date: 20090719
  Serious: Yes (Life-Threatening, Other)
  Sender: FDA-Public Use
  Company Number: PHHY2008JP33797

PATIENT
  Age: 47 Year
  Sex: Male

DRUGS (1)
  1. TEGRETOL [Suspect]
     Route: 048

REACTIONS (1)
  - SUICIDE ATTEMPT [None]
